FAERS Safety Report 7374708-2 (Version None)
Quarter: 2011Q1

REPORT INFORMATION
  Report Type: 
  Country: None (occurrence: None)
  Receive Date: 20110325
  Receipt Date: 20101124
  Transmission Date: 20110831
  Serious: No
  Sender: FDA-Public Use
  Company Number: US-MYLANLABS-2010S1015581

PATIENT
  Sex: Male

DRUGS (2)
  1. FENTANYL-100 [Suspect]
     Dosage: Q48HR
     Route: 062
     Dates: start: 20101016
  2. FENTANYL-100 [Suspect]
     Indication: BACK PAIN
     Dosage: CHANGED Q48H
     Route: 062
     Dates: start: 20091113, end: 20101015

REACTIONS (4)
  - APPLICATION SITE VESICLES [None]
  - APPLICATION SITE PRURITUS [None]
  - APPLICATION SITE BURN [None]
  - WRONG TECHNIQUE IN DRUG USAGE PROCESS [None]
